FAERS Safety Report 7123572-5 (Version None)
Quarter: 2010Q4

REPORT INFORMATION
  Report Type: 
  Country: None (occurrence: None)
  Receive Date: 20101125
  Receipt Date: 20101119
  Transmission Date: 20110411
  Serious: Yes (Other)
  Sender: FDA-Public Use
  Company Number: US-PFIZER INC-2010116402

PATIENT
  Sex: Female
  Weight: 64 kg

DRUGS (1)
  1. SOMAVERT [Suspect]
     Indication: ACROMEGALY
     Dosage: UNK
     Route: 051
     Dates: start: 20100201, end: 20101001

REACTIONS (2)
  - ANGIOEDEMA [None]
  - RASH [None]
